FAERS Safety Report 14249343 (Version 3)
Quarter: 2018Q1

REPORT INFORMATION
  Report Type: Spontaneous
  Country: IT (occurrence: IT)
  Receive Date: 20171204
  Receipt Date: 20180130
  Transmission Date: 20180508
  Serious: Yes (Other)
  Sender: FDA-Public Use
  Company Number: IT-009507513-1710ITA009411

PATIENT
  Sex: Female

DRUGS (3)
  1. NUVARING [Suspect]
     Active Substance: ETHINYL ESTRADIOL\ETONOGESTREL
     Indication: CONTRACEPTION
     Dosage: 1 DF, CYCLICAL
     Route: 067
  2. GYNO CANESTEN CREMA 1% [Suspect]
     Active Substance: CLOTRIMAZOLE
     Dosage: UNK
     Route: 067
     Dates: start: 201710
  3. NUVARING [Suspect]
     Active Substance: ETHINYL ESTRADIOL\ETONOGESTREL
     Dosage: 1 DF, CYCLICAL
     Route: 067
     Dates: start: 2017

REACTIONS (2)
  - Device breakage [Unknown]
  - Pain [Unknown]

NARRATIVE: CASE EVENT DATE: 2017
